FAERS Safety Report 9939827 (Version 1)
Quarter: 2014Q1

REPORT INFORMATION
  Report Type: Report from Study
  Country: US (occurrence: US)
  Receive Date: 20140303
  Receipt Date: 20140303
  Transmission Date: 20141002
  Serious: No
  Sender: FDA-Public Use
  Company Number: US-ABBVIE-13P-163-1037862-00

PATIENT
  Age: 30 Year
  Sex: Female

DRUGS (5)
  1. HUMIRA [Suspect]
     Indication: CROHN^S DISEASE
     Dates: start: 20130103
  2. ASACOL [Concomitant]
     Indication: CROHN^S DISEASE
  3. PREDNISONE [Concomitant]
     Indication: PRODUCT USED FOR UNKNOWN INDICATION
     Dosage: TAPER WITH CURRENT DOSE
  4. LIBRAX [Concomitant]
     Indication: CROHN^S DISEASE
  5. LIBRAX [Concomitant]
     Indication: COLITIS ULCERATIVE

REACTIONS (1)
  - Injection site pain [Recovered/Resolved]
